FAERS Safety Report 8736356 (Version 3)
Quarter: 2013Q1

REPORT INFORMATION
  Report Type: Spontaneous
  Country: US (occurrence: US)
  Receive Date: 20120822
  Receipt Date: 20130123
  Transmission Date: 20140127
  Serious: No
  Sender: FDA-Public Use
  Company Number: US-PFIZER INC-2012201046

PATIENT
  Age: 53 Year
  Sex: Female
  Weight: 70.3 kg

DRUGS (7)
  1. EFFEXOR XR [Suspect]
     Indication: DEPRESSION
     Dosage: 75 MG, 1X/DAY
     Route: 048
  2. EFFEXOR XR [Suspect]
     Indication: ANXIETY
  3. VITAMIN C [Concomitant]
     Indication: ROUTINE HEALTH MAINTENANCE
     Dosage: 1000 MG, DAILY
  4. FISH OIL [Concomitant]
     Indication: CARDIAC DISORDER
     Dosage: UNK, DAILY
     Dates: start: 2012
  5. FISH OIL [Concomitant]
     Indication: BLOOD CHOLESTEROL ABNORMAL
  6. VITAMIN B12 [Concomitant]
     Dosage: UNK
  7. VITAMIN B COMPLEX [Concomitant]
     Dosage: UNK

REACTIONS (15)
  - Wrong technique in drug usage process [Unknown]
  - Drug withdrawal syndrome [Recovered/Resolved]
  - Anger [Recovered/Resolved]
  - Cold sweat [Recovered/Resolved]
  - Hyperhidrosis [Recovered/Resolved]
  - Feeling abnormal [Recovered/Resolved]
  - Nausea [Recovered/Resolved]
  - Dizziness [Recovered/Resolved]
  - Irritability [Recovered/Resolved]
  - Impatience [Recovered/Resolved]
  - Stress [Recovered/Resolved]
  - Anxiety [Recovered/Resolved]
  - Depression [Recovered/Resolved]
  - Emotional disorder [Recovered/Resolved]
  - Sensory disturbance [Recovered/Resolved]
